FAERS Safety Report 20515184 (Version 1)
Quarter: 2022Q1

REPORT INFORMATION
  Report Type: Spontaneous
  Country: US (occurrence: US)
  Receive Date: 20220224
  Receipt Date: 20220224
  Transmission Date: 20220423
  Serious: Yes (Hospitalization)
  Sender: FDA-Public Use
  Company Number: US-ELI_LILLY_AND_COMPANY-US202202008776

PATIENT
  Age: 72 Year
  Sex: Female
  Weight: 53.5 kg

DRUGS (18)
  1. BAMLANIVIMAB [Suspect]
     Active Substance: BAMLANIVIMAB
     Indication: COVID-19
     Dosage: 700 MG, SINGLE
     Route: 042
     Dates: start: 20210115, end: 20210115
  2. ALBUTEROL SULFATE [Concomitant]
     Active Substance: ALBUTEROL SULFATE
     Dosage: UNK, UNKNOWN
     Route: 055
     Dates: start: 20200129, end: 20210914
  3. ALPRAZOLAM [Concomitant]
     Active Substance: ALPRAZOLAM
     Dosage: UNK, UNKNOWN
     Route: 065
     Dates: start: 20180423
  4. BECLOMETHASONE DIPROPIONATE [Concomitant]
     Active Substance: BECLOMETHASONE DIPROPIONATE
     Dosage: UNK, UNKNOWN
     Route: 065
     Dates: start: 20201020, end: 20211213
  5. CHOLECALCIFEROL [Concomitant]
     Active Substance: CHOLECALCIFEROL
     Dosage: UNK, UNKNOWN
     Route: 065
     Dates: start: 20171116, end: 20210128
  6. DEXAMETHASONE [Concomitant]
     Active Substance: DEXAMETHASONE
     Dosage: UNK, UNKNOWN
     Route: 065
     Dates: start: 20210114, end: 20210128
  7. DOXYCYCLINE HYCLATE [Concomitant]
     Active Substance: DOXYCYCLINE HYCLATE
     Dosage: UNK, UNKNOWN
     Route: 065
     Dates: start: 20200917, end: 20210629
  8. ESTROGENS [Concomitant]
     Active Substance: ESTROGENS
     Dosage: UNK, UNKNOWN
     Route: 065
     Dates: start: 20171116
  9. ESTROGENS [Concomitant]
     Active Substance: ESTROGENS
     Dosage: UNK, UNKNOWN
     Route: 065
     Dates: start: 20171116
  10. GABAPENTIN [Concomitant]
     Active Substance: GABAPENTIN
     Dosage: UNK, UNKNOWN
     Route: 065
     Dates: start: 20200827, end: 20210914
  11. HYDROXYZINE HYDROCHLORIDE [Concomitant]
     Active Substance: HYDROXYZINE HYDROCHLORIDE
     Dosage: UNK, UNKNOWN
     Route: 065
     Dates: start: 20171116, end: 20210128
  12. IBUPROFEN [Concomitant]
     Active Substance: IBUPROFEN
     Dosage: UNK, UNKNOWN
     Route: 065
     Dates: start: 20200115, end: 20210413
  13. KETOROLAC TROMETHAMINE [Concomitant]
     Active Substance: KETOROLAC TROMETHAMINE
     Dosage: UNK, UNKNOWN
     Route: 065
     Dates: start: 20180313, end: 20210914
  14. LEVALBUTEROL [Concomitant]
     Active Substance: LEVALBUTEROL
     Dosage: UNK, UNKNOWN
     Route: 055
     Dates: start: 20201020, end: 20211231
  15. METHYLPREDNISOLONE [Concomitant]
     Active Substance: METHYLPREDNISOLONE
     Dosage: UNK, UNKNOWN
     Route: 065
     Dates: start: 20171011, end: 20210128
  16. FISH OIL [Concomitant]
     Active Substance: FISH OIL
     Dosage: UNK, UNKNOWN
     Route: 065
     Dates: start: 20171116
  17. RABEPRAZOLE SODIUM [Concomitant]
     Active Substance: RABEPRAZOLE SODIUM
     Dosage: UNK, UNKNOWN
     Route: 065
     Dates: start: 20171011, end: 20210914
  18. SIMVASTATIN [Concomitant]
     Active Substance: SIMVASTATIN
     Dosage: UNK, UNKNOWN
     Route: 065
     Dates: start: 20171011, end: 20210914

REACTIONS (2)
  - Respiratory failure [Recovered/Resolved]
  - COVID-19 pneumonia [Recovered/Resolved]

NARRATIVE: CASE EVENT DATE: 20210117
